FAERS Safety Report 5035172-1 (Version None)
Quarter: 2006Q2

REPORT INFORMATION
  Report Type: 
  Country: None (occurrence: None)
  Receive Date: 20060622
  Receipt Date: 20060620
  Transmission Date: 20061013
  Serious: Yes (Disabling, Other)
  Sender: FDA-Public Use
  Company Number: 215702

PATIENT
  Age: 64 Year
  Sex: Male
  Weight: 82.7 kg

DRUGS (16)
  1. MABTHERA (RITUXIMAB) CONC FOR SOLUTION FOR INFUSION [Suspect]
     Indication: DIFFUSE LARGE B-CELL LYMPHOMA
     Dosage: 700 MG, INTRAVENOUS
     Route: 042
     Dates: start: 20050110, end: 20050516
  2. CYCLOPHOSPHAMIDE [Concomitant]
  3. DOXORUBICN (DOXORUBICIN/DOXORUBICIN HYDROCHLORIDE) [Concomitant]
  4. VINCRISTINE [Concomitant]
  5. PREDNISOLONE [Concomitant]
  6. TROPISETRON (TROPISETRON HYDROCHLORIDE) [Concomitant]
  7. ACETAMINOPHEN [Concomitant]
  8. CLARITIN [Concomitant]
  9. HYDROCORTISONE [Concomitant]
  10. PEGYLATED FILGRASTIM (PEGFILGRASTIM) [Concomitant]
  11. ATENOLOL [Concomitant]
  12. MINIPRESS [Concomitant]
  13. ASTRIX (ASPIRIN) [Concomitant]
  14. ACETAMINOPHEN [Concomitant]
  15. INDAPAMIDE [Concomitant]
  16. SLOW-K [Concomitant]

REACTIONS (8)
  - BLINDNESS [None]
  - CSF PROTEIN INCREASED [None]
  - CSF TEST ABNORMAL [None]
  - MALIGNANT NERVOUS SYSTEM NEOPLASM [None]
  - OPTIC NERVE DISORDER [None]
  - PAIN IN EXTREMITY [None]
  - PAPILLOEDEMA [None]
  - RECURRENT CANCER [None]
